FAERS Safety Report 4273241-4 (Version None)
Quarter: 2004Q1

REPORT INFORMATION
  Report Type: 
  Country: None (occurrence: None)
  Receive Date: 20040116
  Receipt Date: 20030926
  Transmission Date: 20041129
  Serious: Yes (Congenital Anomaly)
  Sender: FDA-Public Use
  Company Number: US-ROCHE-348108

PATIENT
  Age: 29 Week
  Sex: Female
  Weight: 0.9 kg

DRUGS (9)
  1. FORTOVASE [Suspect]
     Indication: HIV INFECTION
     Dates: start: 20030312
  2. DDI [Suspect]
     Indication: HIV INFECTION
     Dates: end: 20030312
  3. VIRAMUNE [Suspect]
     Indication: HIV INFECTION
     Dates: end: 20030312
  4. RETROVIR [Suspect]
     Indication: HIV INFECTION
     Dates: end: 20030312
  5. ZIAGEN [Suspect]
     Indication: HIV INFECTION
     Dates: start: 20030312
  6. EPIVIR [Suspect]
     Indication: HIV INFECTION
     Dates: start: 20030312
  7. VIRACEPT [Suspect]
     Indication: HIV INFECTION
     Dates: start: 20030312
  8. DEXAMETHASONE [Concomitant]
     Dosage: TAKEN DURING THE SECOND TRIMESTER OF PREGNANCY.
  9. INDOCIN [Concomitant]
     Dosage: TAKEN DURING THE SECOND TRIMESTER OF PREGNANCY.

REACTIONS (4)
  - JOINT DISLOCATION [None]
  - MATERNAL DRUGS AFFECTING FOETUS [None]
  - PATENT DUCTUS ARTERIOSUS [None]
  - PREMATURE BABY [None]
